FAERS Safety Report 12668803 (Version 1)
Quarter: 2016Q3

REPORT INFORMATION
  Report Type: Spontaneous
  Country: SE (occurrence: SE)
  Receive Date: 20160819
  Receipt Date: 20160819
  Transmission Date: 20161109
  Serious: Yes (Other)
  Sender: FDA-Public Use
  Company Number: SE-ROCHE-1816233

PATIENT
  Sex: Male

DRUGS (3)
  1. ALIMTA [Concomitant]
     Active Substance: PEMETREXED DISODIUM
     Indication: LUNG ADENOCARCINOMA
  2. PLATINUM [Concomitant]
     Active Substance: PLATINUM
     Indication: LUNG ADENOCARCINOMA
  3. AVASTIN [Suspect]
     Active Substance: BEVACIZUMAB
     Indication: LUNG ADENOCARCINOMA
     Route: 065

REACTIONS (3)
  - Pleural effusion [Unknown]
  - Pericardial effusion [Unknown]
  - Lung adenocarcinoma recurrent [Unknown]
